FAERS Safety Report 25838972 (Version 2)
Quarter: 2025Q4

REPORT INFORMATION
  Report Type: Spontaneous
  Country: US (occurrence: US)
  Receive Date: 20250924
  Receipt Date: 20251119
  Transmission Date: 20260118
  Serious: No
  Sender: BRISTOL-MYERS SQUIBB COMPANY
  Company Number: US-BRISTOL-MYERS SQUIBB COMPANY-2025-130809

PATIENT
  Age: 88 Year
  Sex: Female

DRUGS (2)
  1. ORENCIA [Suspect]
     Active Substance: ABATACEPT
     Indication: Rheumatoid arthritis
     Route: 058
     Dates: start: 201710
  2. ORENCIA [Suspect]
     Active Substance: ABATACEPT
     Route: 058
     Dates: start: 201710

REACTIONS (2)
  - Joint swelling [Unknown]
  - Arthralgia [Unknown]

NARRATIVE: CASE EVENT DATE: 20250801
